FAERS Safety Report 6552833-3 (Version None)
Quarter: 2010Q1

REPORT INFORMATION
  Report Type: 
  Country: None (occurrence: None)
  Receive Date: 20100121
  Receipt Date: 20100111
  Transmission Date: 20100710
  Serious: Yes (Hospitalization, Other)
  Sender: FDA-Public Use
  Company Number: 472809

PATIENT
  Age: 34 Month
  Sex: Female
  Weight: 13 kg

DRUGS (46)
  1. METHOTREXATE [Suspect]
     Indication: DRUG USE FOR UNKNOWN INDICATION
     Dosage: SEE IMAGE
  2. ACETAMINOPHEN [Concomitant]
  3. ALLOPURINOL [Concomitant]
  4. (ALTEPLASE) [Concomitant]
  5. AMLODIPINE [Concomitant]
  6. (AMOXICILLIN W/CLAVULANATE POTASSIUM) [Concomitant]
  7. CEFPROZIL [Concomitant]
  8. CHLORPROMAZINE [Concomitant]
  9. CODEINE SULFATE [Concomitant]
  10. DEXAMETHASONE [Concomitant]
  11. DIMENHYDRINATE [Concomitant]
  12. (DIPHENHYDRAMINE) [Concomitant]
  13. (DOCUSATE SODIUM) [Concomitant]
  14. FAMCICLOVIR [Concomitant]
  15. FOLIC ACID [Concomitant]
  16. HYDROCORTISONE [Concomitant]
  17. ELSPAR [Concomitant]
  18. LORAZEPAM [Concomitant]
  19. MERCAPTOPURINE [Concomitant]
  20. (METHYLPREDNISOLONE SODIUM SUCCINATE) [Concomitant]
  21. METOCLOPRAMIDE [Concomitant]
  22. MIDAZOLAM HCL [Concomitant]
  23. (MINERAL OIL EMULSION) [Concomitant]
  24. NIFEDIPINE [Concomitant]
  25. (NUPERCAINAL /00164102/) [Concomitant]
  26. NYSTATIN [Concomitant]
  27. PENTAMIDINE ISETHIONATE [Concomitant]
  28. PHYTONADIONE [Concomitant]
  29. PIPERACILLIN [Concomitant]
  30. PREDNISONE [Concomitant]
  31. PSEUDOEPHEDRINE HCL [Concomitant]
  32. RANITIDINE [Concomitant]
  33. ALBUTEROL [Concomitant]
  34. (SODIUM PHOSPHATE) [Concomitant]
  35. SULFAMETHOXAZOLE AND TRIMETHOPRIM [Concomitant]
  36. TOBRAMYCIN [Concomitant]
  37. TPN [Concomitant]
  38. TRIMETHOPRIM [Concomitant]
  39. (ZINECARD /01200102/) [Concomitant]
  40. DOXORUBICIN HCL [Concomitant]
  41. FENTANYL CITRATE INJECTION USP (FENTANYL) [Concomitant]
  42. CYTARABINE [Concomitant]
  43. HEPARIN SODIUM INJECTION [Concomitant]
  44. MORPHINE SULFATE [Concomitant]
  45. ONDANSETRON [Concomitant]
  46. VINCRISTINE SULFATE [Concomitant]

REACTIONS (10)
  - COUGH [None]
  - DIARRHOEA [None]
  - DRUG HYPERSENSITIVITY [None]
  - DYSPHONIA [None]
  - DYSPNOEA [None]
  - EYELID OEDEMA [None]
  - LIP OEDEMA [None]
  - RASH MACULAR [None]
  - TACHYCARDIA [None]
  - VOMITING [None]
